FAERS Safety Report 10345117 (Version 1)
Quarter: 2014Q3

REPORT INFORMATION
  Report Type: Spontaneous
  Country: JP (occurrence: None)
  Receive Date: 20140723
  Receipt Date: 20140723
  Transmission Date: 20150326
  Serious: Yes (Death, Life-Threatening)
  Sender: FDA-Public Use
  Company Number: 2014CVI00010

PATIENT
  Age: 71 Year
  Sex: Male
  Weight: 55.9 kg

DRUGS (17)
  1. AMPHOTERICIN [Suspect]
     Active Substance: AMPHOTERICIN B
     Route: 048
     Dates: start: 20121224
  2. CYCLOPHOSPHAMIDE. [Suspect]
     Active Substance: CYCLOPHOSPHAMIDE
     Indication: ALLERGIC GRANULOMATOUS ANGIITIS
     Route: 048
     Dates: start: 20120511, end: 201211
  3. VALGANCICLOVIR HYDROCHLORIDE [Suspect]
     Active Substance: VALGANCICLOVIR HYDROCHLORIDE
     Route: 048
     Dates: start: 20130115, end: 20130122
  4. MEROPENEM. [Suspect]
     Active Substance: MEROPENEM
     Route: 042
     Dates: start: 20130113, end: 20130123
  5. GABEXATE MESYLATE [Suspect]
     Active Substance: GABEXATE MESYLATE
     Route: 042
     Dates: start: 20130113
  6. PREDONINE [Suspect]
     Active Substance: PREDNISOLONE\PREDNISOLONE ACETATE\PREDNISOLONE SODIUM SUCCINATE
     Indication: ALLERGIC GRANULOMATOUS ANGIITIS
     Dates: start: 201210, end: 20121220
  7. ITRACONAZOLE. [Suspect]
     Active Substance: ITRACONAZOLE
     Indication: ALLERGIC GRANULOMATOUS ANGIITIS
     Route: 048
     Dates: start: 20121228, end: 20130123
  8. AMPHOTERICIN [Suspect]
     Active Substance: AMPHOTERICIN B
     Route: 042
     Dates: start: 20130122
  9. ATOVAQUONE. [Suspect]
     Active Substance: ATOVAQUONE
     Indication: PNEUMOCYSTIS JIROVECII PNEUMONIA
     Route: 048
     Dates: start: 20130118, end: 20130123
  10. AZATHIOPRINE. [Suspect]
     Active Substance: AZATHIOPRINE
     Indication: ALLERGIC GRANULOMATOUS ANGIITIS
     Route: 048
     Dates: start: 201211, end: 20121219
  11. FRUSEMIDE [Suspect]
     Active Substance: FUROSEMIDE
     Route: 042
     Dates: start: 20130117, end: 20130121
  12. ME-PREDNISOLONE NA SUCC. [Suspect]
     Active Substance: METHYLPREDNISOLONE SODIUM SUCCINATE
     Route: 042
     Dates: start: 20121228, end: 20121230
  13. MICAFUNGIN INJECTION [Suspect]
     Active Substance: MICAFUNGIN
     Route: 042
     Dates: start: 20130119, end: 20130121
  14. ZANTAC [Suspect]
     Active Substance: RANITIDINE HYDROCHLORIDE
     Indication: PROPHYLAXIS AGAINST GASTROINTESTINAL ULCER
     Dates: start: 20130112
  15. SIVELESTAT SODIUM [Suspect]
     Active Substance: SIVELESTAT SODIUM
     Route: 042
     Dates: start: 20130112
  16. KETAMINE HYDROCHLORIDE. [Suspect]
     Active Substance: KETAMINE HYDROCHLORIDE
     Dates: start: 20130112
  17. DORMICUM (MIDAZOLAM HYDROCHLORIDE) [Suspect]
     Active Substance: MIDAZOLAM HYDROCHLORIDE
     Dates: start: 20130112

REACTIONS (6)
  - Blood bilirubin increased [None]
  - Gamma-glutamyltransferase increased [None]
  - Aspartate aminotransferase increased [None]
  - Hepatic function abnormal [None]
  - Rash [None]
  - Hypercapnia [None]

NARRATIVE: CASE EVENT DATE: 20130119
